FAERS Safety Report 9848618 (Version 2)
Quarter: 2014Q1

REPORT INFORMATION
  Report Type: Spontaneous
  Country: US (occurrence: None)
  Receive Date: 20140122
  Receipt Date: 20140127
  Transmission Date: 20141002
  Serious: Yes (Death)
  Sender: FDA-Public Use
  Company Number: UTC-043376

PATIENT
  Age: 42 Year
  Sex: Female
  Weight: 45.5 kg

DRUGS (2)
  1. REMODULIN [Suspect]
     Indication: PULMONARY ARTERIAL HYPERTENSION
     Dosage: (0.13 UG/KG, 1 IN 1 MIN)
     Route: 041
     Dates: start: 20071217
  2. TRACLEER (BOSENTAN) [Concomitant]

REACTIONS (2)
  - Death [None]
  - Cardio-respiratory arrest [None]
